FAERS Safety Report 5554618-3 (Version None)
Quarter: 2007Q4

REPORT INFORMATION
  Report Type: 
  Country: None (occurrence: None)
  Receive Date: 20071213
  Receipt Date: 20071121
  Transmission Date: 20080405
  Serious: Yes (Disabling)
  Sender: FDA-Public Use
  Company Number: BR-BAYER-200710090LA

PATIENT
  Age: 55 Year
  Sex: Female

DRUGS (4)
  1. BETASERON [Suspect]
     Indication: MULTIPLE SCLEROSIS
     Route: 058
  2. ANALGESICS [Concomitant]
     Indication: BONE PAIN
     Route: 065
  3. UNSPECIFIED MEDICATION [Concomitant]
     Indication: GLAUCOMA
     Route: 065
  4. DIMORF [Concomitant]
     Indication: DRUG USE FOR UNKNOWN INDICATION
     Route: 048

REACTIONS (7)
  - BACK PAIN [None]
  - FEELING ABNORMAL [None]
  - HEADACHE [None]
  - INJECTION SITE PAIN [None]
  - MOBILITY DECREASED [None]
  - PALPITATIONS [None]
  - VISUAL ACUITY REDUCED [None]
